FAERS Safety Report 6218171-3 (Version None)
Quarter: 2009Q2

REPORT INFORMATION
  Report Type: 
  Country: None (occurrence: None)
  Receive Date: 20090608
  Receipt Date: 20090528
  Transmission Date: 20091009
  Serious: Yes (Hospitalization)
  Sender: FDA-Public Use
  Company Number: JP-NOVOPROD-247641

PATIENT
  Age: 50 Year
  Sex: Male
  Weight: 74 kg

DRUGS (5)
  1. PENFILL R CHU [Suspect]
     Indication: TYPE 2 DIABETES MELLITUS
     Dosage: 4-4-4
     Route: 058
     Dates: start: 20030528, end: 20030604
  2. PENFILL 30R CHU [Suspect]
     Indication: TYPE 2 DIABETES MELLITUS
     Dosage: 14-18 IU
     Route: 058
     Dates: start: 20030506, end: 20030731
  3. LANTUS [Concomitant]
     Indication: TYPE 2 DIABETES MELLITUS
     Dates: start: 20030814
  4. METFORMIN HYDROCHLORIDE [Concomitant]
     Indication: TYPE 2 DIABETES MELLITUS
     Dosage: 500 MG, QD
     Route: 048
     Dates: start: 20030814
  5. ALOTEC [Concomitant]
     Dosage: 5 MG, UNK

REACTIONS (3)
  - BLOOD GLUCOSE INCREASED [None]
  - DRUG HYPERSENSITIVITY [None]
  - INJECTION SITE REACTION [None]
